FAERS Safety Report 16600737 (Version 1)
Quarter: 2019Q3

REPORT INFORMATION
  Report Type: Spontaneous
  Country: FR (occurrence: FR)
  Receive Date: 20190719
  Receipt Date: 20190719
  Transmission Date: 20191004
  Serious: Yes (Other)
  Sender: FDA-Public Use
  Company Number: FR-TEVA-2019-FR-1079277

PATIENT
  Age: 29 Year
  Sex: Male

DRUGS (2)
  1. METHADONE CHLORHYDRATE [Suspect]
     Active Substance: METHADONE HYDROCHLORIDE
     Indication: DRUG DEPENDENCE
     Dosage: 20 MILLIGRAM DAILY;
     Route: 048
  2. FENTANYL (CHLORHYDRATE DE) [Suspect]
     Active Substance: FENTANYL HYDROCHLORIDE
     Route: 048

REACTIONS (2)
  - Drug dependence [Recovering/Resolving]
  - Intentional product misuse [Recovering/Resolving]

NARRATIVE: CASE EVENT DATE: 2012
